FAERS Safety Report 24299323 (Version 1)
Quarter: 2024Q3

REPORT INFORMATION
  Report Type: Spontaneous
  Country: US (occurrence: US)
  Receive Date: 20240909
  Receipt Date: 20240909
  Transmission Date: 20241017
  Serious: Yes (Other)
  Sender: PROACTIV
  Company Number: US-The Proactiv LLC-2161393

PATIENT
  Age: 52 Year
  Sex: Female

DRUGS (7)
  1. PROACTIV SOLUTION RENEWING CLEANSER [Suspect]
     Active Substance: BENZOYL PEROXIDE
     Route: 061
  2. PROACTIV REVITALIZING TONER COMBINATION THERAPY ACNE TREATMENT [Suspect]
     Active Substance: SALICYLIC ACID
     Route: 061
  3. PROACTIV EMERGENCY BLEMISH RELIEF [Suspect]
     Active Substance: BENZOYL PEROXIDE
     Route: 061
  4. COSMETICS [Suspect]
     Active Substance: COSMETICS
     Route: 061
  5. COSMETICS [Suspect]
     Active Substance: COSMETICS
     Route: 061
  6. COSMETICS [Suspect]
     Active Substance: COSMETICS
     Route: 061
  7. PROACTIV REPAIRING TREATMENT [Suspect]
     Active Substance: BENZOYL PEROXIDE
     Route: 061

REACTIONS (1)
  - Breast cancer stage IV [Unknown]
